FAERS Safety Report 16912501 (Version 1)
Quarter: 2019Q4

REPORT INFORMATION
  Report Type: Spontaneous
  Country: US (occurrence: US)
  Receive Date: 20191014
  Receipt Date: 20191014
  Transmission Date: 20200122
  Serious: Yes (Other)
  Sender: FDA-Public Use
  Company Number: US-TEVA-2019-US-1121728

PATIENT
  Age: 76 Year
  Sex: Male

DRUGS (2)
  1. DONEPEZIL. [Suspect]
     Active Substance: DONEPEZIL
     Indication: URINARY RETENTION
     Route: 065
  2. BETHANECHOL [Suspect]
     Active Substance: BETHANECHOL
     Indication: URINARY RETENTION
     Route: 065

REACTIONS (1)
  - Treatment failure [Unknown]
